FAERS Safety Report 13450284 (Version 1)
Quarter: 2017Q2

REPORT INFORMATION
  Report Type: Report from Study
  Country: None (occurrence: US)
  Receive Date: 20170417
  Receipt Date: 20170417
  Transmission Date: 20170830
  Serious: Yes (Hospitalization, Other)
  Sender: FDA-Public Use
  Company Number: US-ABBVIE-13P-163-1097195-00

PATIENT
  Age: 64 Year
  Sex: Male

DRUGS (5)
  1. HUMIRA [Suspect]
     Active Substance: ADALIMUMAB
     Indication: RHEUMATOID ARTHRITIS
     Route: 058
     Dates: start: 20130506
  2. ALLOPURINOL. [Concomitant]
     Active Substance: ALLOPURINOL
     Indication: GOUT
  3. MOBIC [Concomitant]
     Active Substance: MELOXICAM
     Indication: PAIN
  4. GABAPENTIN. [Concomitant]
     Active Substance: GABAPENTIN
     Indication: NEUROPATHY PERIPHERAL
  5. ISOSORBIDE. [Concomitant]
     Active Substance: ISOSORBIDE
     Indication: ATRIAL FIBRILLATION

REACTIONS (5)
  - Impaired healing [Not Recovered/Not Resolved]
  - Injection site erythema [Recovering/Resolving]
  - Peripheral swelling [Recovering/Resolving]
  - Hip fracture [Recovering/Resolving]
  - Dialysis [Not Recovered/Not Resolved]

NARRATIVE: CASE EVENT DATE: 20130509
